FAERS Safety Report 10509027 (Version 1)
Quarter: 2014Q3

REPORT INFORMATION
  Report Type: Spontaneous
  Country: US (occurrence: None)
  Receive Date: 20140915
  Receipt Date: 20140915
  Transmission Date: 20150326
  Serious: Yes (Other)
  Sender: FDA-Public Use
  Company Number: 2014-US-002723

PATIENT
  Age: 34 Year
  Sex: Female
  Weight: 98 kg

DRUGS (3)
  1. RITALIN [Concomitant]
     Active Substance: METHYLPHENIDATE HYDROCHLORIDE
  2. XYREM [Suspect]
     Active Substance: SODIUM OXYBATE
     Indication: CATAPLEXY
     Route: 048
     Dates: start: 201402, end: 201402
  3. XYREM [Suspect]
     Active Substance: SODIUM OXYBATE
     Indication: NARCOLEPSY
     Route: 048
     Dates: start: 201402, end: 201402

REACTIONS (10)
  - Paraesthesia [None]
  - Contusion [None]
  - Condition aggravated [None]
  - Vascular pain [None]
  - Hypertension [None]
  - Hypersensitivity [None]
  - Confusional state [None]
  - Pain [None]
  - Hyperaesthesia [None]
  - Arthralgia [None]

NARRATIVE: CASE EVENT DATE: 20140228
